FAERS Safety Report 6336766-3 (Version None)
Quarter: 2009Q3

REPORT INFORMATION
  Report Type: 
  Country: None (occurrence: None)
  Receive Date: 20090901
  Receipt Date: 20090820
  Transmission Date: 20100115
  Serious: Yes (Other)
  Sender: FDA-Public Use
  Company Number: US-PFIZER INC-2009254487

PATIENT
  Sex: Female
  Weight: 52.154 kg

DRUGS (6)
  1. LYRICA [Suspect]
     Indication: BACK PAIN
     Dosage: FREQUENCY: 2X/DAY, EVERY DAY;
     Dates: start: 20090810, end: 20090810
  2. OXYCONTIN [Concomitant]
     Dosage: UNK
  3. VALSARTAN [Concomitant]
     Indication: HYPERTENSION
     Route: 048
  4. METOPROLOL TARTRATE [Concomitant]
     Indication: HYPERTENSION
  5. AMITRIPTYLINE HCL [Concomitant]
     Indication: HERPES ZOSTER
     Route: 048
  6. LEVOTHYROXINE [Concomitant]
     Indication: THYROID DISORDER
     Route: 048

REACTIONS (9)
  - ACTIVITIES OF DAILY LIVING IMPAIRED [None]
  - DIZZINESS [None]
  - DYSPNOEA [None]
  - DYSSTASIA [None]
  - EATING DISORDER [None]
  - GAIT DISTURBANCE [None]
  - INSOMNIA [None]
  - SPEECH DISORDER [None]
  - THINKING ABNORMAL [None]
